FAERS Safety Report 14975344 (Version 1)
Quarter: 2018Q2

REPORT INFORMATION
  Report Type: Spontaneous
  Country: US (occurrence: US)
  Receive Date: 20180515
  Receipt Date: 20180515
  Transmission Date: 20180711
  Serious: No
  Sender: FDA-Public Use
  Company Number: None

PATIENT
  Age: 47 Year
  Sex: Female

DRUGS (1)
  1. BENLYSTA [Suspect]
     Active Substance: BELIMUMAB

REACTIONS (5)
  - Wrong technique in product usage process [None]
  - Pain [None]
  - Injection site erythema [None]
  - Injection site rash [None]
  - Injection site extravasation [None]

NARRATIVE: CASE EVENT DATE: 20180515
